FAERS Safety Report 4366124-2 (Version None)
Quarter: 2004Q2

REPORT INFORMATION
  Report Type: 
  Country: None (occurrence: None)
  Receive Date: 20040524
  Receipt Date: 20040514
  Transmission Date: 20050107
  Serious: Yes (Life-Threatening)
  Sender: FDA-Public Use
  Company Number: 2004AP02727

PATIENT
  Age: 73 Year
  Sex: Female

DRUGS (5)
  1. OMEPRAZOLE [Suspect]
     Dosage: 20 MG DAILY PO
     Route: 048
     Dates: start: 20040214, end: 20040429
  2. MUCOSAL L [Concomitant]
  3. BIOFERMIN [Concomitant]
  4. HOKUNALIN [Concomitant]
  5. VOLTAREN [Concomitant]

REACTIONS (1)
  - INTERSTITIAL LUNG DISEASE [None]
